FAERS Safety Report 13745618 (Version 2)
Quarter: 2017Q3

REPORT INFORMATION
  Report Type: Spontaneous
  Country: FR (occurrence: FR)
  Receive Date: 20170712
  Receipt Date: 20170720
  Transmission Date: 20171127
  Serious: Yes (Hospitalization)
  Sender: FDA-Public Use
  Company Number: FR-PFIZER INC-2017300903

PATIENT
  Age: 82 Year
  Sex: Female

DRUGS (19)
  1. HYPERIUM [Concomitant]
     Active Substance: RILMENIDINE PHOSPHATE
     Dosage: UNK
  2. TEMESTA [Suspect]
     Active Substance: LORAZEPAM
     Dosage: 2.5 MG, DAILY
     Route: 048
     Dates: end: 201706
  3. MOVICOL [Concomitant]
     Active Substance: POLYETHYLENE GLYCOL 3350\POTASSIUM CHLORIDE\SODIUM BICARBONATE\SODIUM CHLORIDE
     Dosage: UNK
  4. VITAMIN D [Concomitant]
     Active Substance: CHOLECALCIFEROL
     Dosage: UNK
  5. LASILIX FAIBLE [Suspect]
     Active Substance: FUROSEMIDE
     Indication: HYPERTENSION
     Dosage: 20 MG, DAILY
     Route: 048
     Dates: end: 201705
  6. KARDEGIC [Concomitant]
     Active Substance: ASPIRIN LYSINE
     Dosage: UNK
  7. LANTUS [Concomitant]
     Active Substance: INSULIN GLARGINE
     Dosage: UNK
  8. TRAMADOL. [Suspect]
     Active Substance: TRAMADOL
     Indication: PAIN
     Dosage: 100 MG, DAILY
     Route: 048
     Dates: end: 201706
  9. DISCOTRINE [Concomitant]
     Active Substance: NITROGLYCERIN
     Dosage: UNK
  10. CRESTOR [Concomitant]
     Active Substance: ROSUVASTATIN CALCIUM
     Dosage: UNK
  11. DOLIPRANE [Concomitant]
     Active Substance: ACETAMINOPHEN
     Dosage: UNK
  12. TRIATEC [Suspect]
     Active Substance: RAMIPRIL
     Indication: HYPERTENSION
     Dosage: 10 MG, DAILY
     Route: 048
     Dates: end: 201705
  13. METFORMIN HCL [Suspect]
     Active Substance: METFORMIN HYDROCHLORIDE
     Indication: TYPE 2 DIABETES MELLITUS
     Dosage: 1000 MG, 3X/DAY
     Route: 048
     Dates: end: 201705
  14. TRAMADOL. [Suspect]
     Active Substance: TRAMADOL
     Indication: PAIN
     Dosage: 50 MG, 2X/DAY
     Route: 048
     Dates: end: 201706
  15. DIAMICRON [Concomitant]
     Active Substance: GLICLAZIDE
     Dosage: UNK
  16. PLAVIX [Concomitant]
     Active Substance: CLOPIDOGREL BISULFATE
     Dosage: UNK
  17. BISOCE [Concomitant]
     Active Substance: BISOPROLOL
     Dosage: UNK
  18. INEXIUM [Concomitant]
     Active Substance: ESOMEPRAZOLE
     Dosage: UNK
  19. FUMAFER [Concomitant]
     Active Substance: FERROUS FUMARATE
     Dosage: UNK

REACTIONS (3)
  - Diabetes mellitus inadequate control [Unknown]
  - Disorientation [Unknown]
  - Confusional state [Recovered/Resolved]

NARRATIVE: CASE EVENT DATE: 20170524
